FAERS Safety Report 25581557 (Version 1)
Quarter: 2025Q3

REPORT INFORMATION
  Report Type: Spontaneous
  Country: US (occurrence: US)
  Receive Date: 20250719
  Receipt Date: 20250719
  Transmission Date: 20251021
  Serious: No
  Sender: GLAXOSMITHKLINE
  Company Number: US-GSK-US2025090304

PATIENT
  Age: 27 Year
  Sex: Female

DRUGS (1)
  1. NUCALA [Suspect]
     Active Substance: MEPOLIZUMAB
     Indication: Asthma

REACTIONS (3)
  - Dyspnoea [Unknown]
  - Urticaria [Unknown]
  - Wheezing [Unknown]

NARRATIVE: CASE EVENT DATE: 20250701
